FAERS Safety Report 8857201 (Version 2)
Quarter: 2012Q4

REPORT INFORMATION
  Report Type: 
  Country: FI (occurrence: FI)
  Receive Date: 20121024
  Receipt Date: 20121213
  Transmission Date: 20130627
  Serious: Yes (Hospitalization)
  Sender: FDA-Public Use
  Company Number: FI-ELI_LILLY_AND_COMPANY-FI201210004316

PATIENT
  Sex: Female

DRUGS (5)
  1. FORSTEO [Suspect]
     Indication: OSTEOPOROSIS
     Dosage: 20 ug, qd
     Route: 058
     Dates: start: 20110728
  2. CORTISONE [Concomitant]
     Indication: PULMONARY FIBROSIS
     Dosage: UNK
  3. VITAMIN D [Concomitant]
     Indication: MEDICAL DIET
     Dosage: UNK
  4. TRAMAL [Concomitant]
     Indication: PAIN
     Dosage: UNK, prn
  5. PANADOL [Concomitant]
     Indication: PAIN
     Dosage: UNK

REACTIONS (1)
  - Mania [Recovered/Resolved]
